FAERS Safety Report 5356345-4 (Version None)
Quarter: 2007Q2

REPORT INFORMATION
  Report Type: 
  Country: None (occurrence: None)
  Receive Date: 20070613
  Receipt Date: 20070607
  Transmission Date: 20071010
  Serious: Yes (Other)
  Sender: FDA-Public Use
  Company Number: US-PFIZER INC-2007046686

PATIENT
  Sex: Female

DRUGS (8)
  1. CHANTIX [Suspect]
     Indication: SMOKING CESSATION THERAPY
  2. VALIUM [Concomitant]
  3. EFFEXOR [Concomitant]
  4. SPIRONOLACTONE [Concomitant]
  5. TOPAMAX [Concomitant]
  6. LEVOTHYROXINE SODIUM [Concomitant]
  7. ADVAIR DISKUS 100/50 [Concomitant]
  8. LEXAPRO [Concomitant]

REACTIONS (7)
  - ABNORMAL DREAMS [None]
  - HERPES ZOSTER [None]
  - HOMICIDAL IDEATION [None]
  - MENTAL DISORDER [None]
  - PAIN [None]
  - VIOLENT IDEATION [None]
  - WEIGHT FLUCTUATION [None]
